FAERS Safety Report 5979424-7 (Version None)
Quarter: 2008Q4

REPORT INFORMATION
  Report Type: 
  Country: None (occurrence: None)
  Receive Date: 20081126
  Receipt Date: 20081113
  Transmission Date: 20090506
  Serious: Yes (Other)
  Sender: FDA-Public Use
  Company Number: CIP08002386

PATIENT
  Age: 67 Year
  Sex: Female

DRUGS (4)
  1. ACTONEL [Suspect]
     Dosage: ORAL
     Route: 048
     Dates: end: 20081004
  2. THYROID THERAPY [Concomitant]
  3. L-THYROXINE (LEVOTHYROXINE) [Concomitant]
  4. OTHER HEMATOLOGICAL AGENTS [Concomitant]

REACTIONS (2)
  - ATRIAL FIBRILLATION [None]
  - CONDITION AGGRAVATED [None]
